FAERS Safety Report 9006530 (Version 2)
Quarter: 2013Q3

REPORT INFORMATION
  Report Type: Spontaneous
  Country: US (occurrence: US)
  Receive Date: 20130110
  Receipt Date: 20130815
  Transmission Date: 20140515
  Serious: Yes (Hospitalization, Other)
  Sender: FDA-Public Use
  Company Number: US-BAYER-2013-003275

PATIENT
  Age: 38 Year
  Sex: Female
  Weight: 196.83 kg

DRUGS (10)
  1. YASMIN [Suspect]
     Dosage: UNK
     Dates: start: 2002
  2. YAZ [Suspect]
     Dosage: UNK
     Dates: start: 2002
  3. ERYTHROMYCIN [Concomitant]
  4. TRIMOX [AMOXICILLIN TRIHYDRATE] [Concomitant]
  5. ATENOLOL [Concomitant]
  6. ATENOLOL [Concomitant]
     Dosage: 50 MG, EVERYDAY
  7. DETROL [Concomitant]
  8. PROVERA [Concomitant]
     Dosage: 10 MG, UNK
  9. NAPROSYN [Concomitant]
     Indication: MENSTRUAL DISCOMFORT
  10. IBUPROFEN [Concomitant]
     Indication: DYSMENORRHOEA

REACTIONS (5)
  - Deep vein thrombosis [None]
  - Pain [None]
  - Injury [None]
  - Thrombosed varicose vein [None]
  - Mental disorder [None]
